FAERS Safety Report 5608039-5 (Version None)
Quarter: 2008Q1

REPORT INFORMATION
  Report Type: 
  Country: None (occurrence: None)
  Receive Date: 20080128
  Receipt Date: 20080128
  Transmission Date: 20080703
  Serious: Yes (Other)
  Sender: FDA-Public Use
  Company Number: None

PATIENT

DRUGS (1)
  1. CYMBALTA [Suspect]
     Indication: NEURALGIA
     Dosage: 30MG ONCE DAILY PO
     Route: 048
     Dates: start: 20061201, end: 20071001

REACTIONS (5)
  - ANXIETY [None]
  - CHEST DISCOMFORT [None]
  - FEELING ABNORMAL [None]
  - PANIC DISORDER [None]
  - WITHDRAWAL SYNDROME [None]
